FAERS Safety Report 13471868 (Version 1)
Quarter: 2017Q2

REPORT INFORMATION
  Report Type: Spontaneous
  Country: US (occurrence: US)
  Receive Date: 20170423
  Receipt Date: 20170423
  Transmission Date: 20170830
  Serious: No
  Sender: FDA-Public Use
  Company Number: None

PATIENT
  Age: 47 Year
  Sex: Male
  Weight: 148.32 kg

DRUGS (1)
  1. PRAVASTATIN. [Suspect]
     Active Substance: PRAVASTATIN
     Indication: HYPERLIPIDAEMIA
     Dates: start: 20151211, end: 20161021

REACTIONS (6)
  - Arthropod bite [None]
  - Rash [None]
  - Myalgia [None]
  - Blood creatine phosphokinase increased [None]
  - Haematuria [None]
  - Back pain [None]

NARRATIVE: CASE EVENT DATE: 20170310
